FAERS Safety Report 4362340-4 (Version None)
Quarter: 2004Q2

REPORT INFORMATION
  Report Type: 
  Country: None (occurrence: None)
  Receive Date: 20040521
  Receipt Date: 20040511
  Transmission Date: 20050107
  Serious: Yes (Hospitalization)
  Sender: FDA-Public Use
  Company Number: JACFRA2000000690

PATIENT
  Age: 17 Year
  Sex: Male

DRUGS (7)
  1. TOPIRAMATE [Suspect]
     Route: 049
  2. TOPIRAMATE [Suspect]
     Indication: EPILEPSY
     Route: 049
  3. DEPAKENE [Interacting]
     Indication: EPILEPSY
     Route: 049
     Dates: start: 20000403
  4. DI-HYDAN [Concomitant]
     Route: 049
  5. DI-HYDAN [Concomitant]
     Route: 049
  6. DI-HYDAN [Concomitant]
     Indication: EPILEPSY
     Route: 049
  7. RIVOTRIL [Concomitant]
     Indication: EPILEPSY
     Route: 049

REACTIONS (7)
  - CONVULSION [None]
  - DEPRESSED LEVEL OF CONSCIOUSNESS [None]
  - DISTURBANCE IN ATTENTION [None]
  - ELECTROENCEPHALOGRAM ABNORMAL [None]
  - ENCEPHALOPATHY [None]
  - HEPATIC ENZYME INCREASED [None]
  - SOMNOLENCE [None]
